FAERS Safety Report 4767315-9 (Version None)
Quarter: 2005Q3

REPORT INFORMATION
  Report Type: 
  Country: None (occurrence: None)
  Receive Date: 20050913
  Receipt Date: 20050901
  Transmission Date: 20060218
  Serious: Yes (Other)
  Sender: FDA-Public Use
  Company Number: GB-GLAXOSMITHKLINE-B0392619A

PATIENT
  Age: 44 Year
  Sex: Male

DRUGS (1)
  1. ACYCLOVIR [Suspect]
     Dosage: 200MG FIVE TIMES PER DAY
     Route: 048
     Dates: start: 20050518

REACTIONS (3)
  - NASAL OEDEMA [None]
  - RASH [None]
  - SWELLING FACE [None]
